FAERS Safety Report 6642118-9 (Version None)
Quarter: 2010Q1

REPORT INFORMATION
  Report Type: 
  Country: None (occurrence: None)
  Receive Date: 20100319
  Receipt Date: 20100305
  Transmission Date: 20100710
  Serious: Yes (Hospitalization)
  Sender: FDA-Public Use
  Company Number: FI-ELI_LILLY_AND_COMPANY-FI201003000233

PATIENT
  Age: 39 Year
  Sex: Male

DRUGS (5)
  1. HUMALOG [Suspect]
     Indication: TYPE 1 DIABETES MELLITUS
     Dosage: UNK, UNK
     Route: 058
     Dates: start: 20000101, end: 20100201
  2. HUMALOG [Suspect]
     Dosage: 2.2 IU, UNK
     Route: 058
     Dates: start: 20100222, end: 20100222
  3. HUMALOG [Suspect]
     Dosage: 12.3 IU, UNK
     Route: 058
     Dates: start: 20100222, end: 20100222
  4. HUMALOG [Suspect]
     Dosage: 11.8 IU, UNK
     Route: 058
     Dates: start: 20100223, end: 20100223
  5. HUMALOG [Suspect]
     Dosage: UNK, UNK
     Route: 058
     Dates: start: 20100223, end: 20100101

REACTIONS (6)
  - BLOOD GLUCOSE INCREASED [None]
  - BLOOD PH INCREASED [None]
  - DIABETIC KETOACIDOSIS [None]
  - DRUG INEFFECTIVE [None]
  - FEELING ABNORMAL [None]
  - PRODUCT QUALITY ISSUE [None]
